FAERS Safety Report 15697357 (Version 1)
Quarter: 2018Q4

REPORT INFORMATION
  Report Type: Spontaneous
  Country: US (occurrence: US)
  Receive Date: 20181207
  Receipt Date: 20181207
  Transmission Date: 20190205
  Serious: No
  Sender: FDA-Public Use
  Company Number: US-ASTRAZENECA-2018SF51174

PATIENT
  Age: 8 Year
  Sex: Male
  Weight: 29.5 kg

DRUGS (1)
  1. SYMBICORT [Suspect]
     Active Substance: BUDESONIDE\FORMOTEROL FUMARATE DIHYDRATE
     Indication: ASTHMA
     Dosage: 80/4.5 2 PUFFS TWO TIMES A DAY
     Route: 055

REACTIONS (3)
  - Asthma [Not Recovered/Not Resolved]
  - Off label use [Unknown]
  - Product use issue [Unknown]
